FAERS Safety Report 24119998 (Version 2)
Quarter: 2024Q3

REPORT INFORMATION
  Report Type: Report from Study
  Country: US (occurrence: US)
  Receive Date: 20240722
  Receipt Date: 20240814
  Transmission Date: 20241016
  Serious: Yes (Other)
  Sender: AIMMUNE
  Company Number: US-ZENPEP LLC-2024AIMT01089

PATIENT

DRUGS (2)
  1. ZENPEP [Suspect]
     Active Substance: PANCRELIPASE AMYLASE\PANCRELIPASE LIPASE\PANCRELIPASE PROTEASE
     Indication: Pancreatic failure
     Dosage: 40 000 USP UNITS 100CT CAPSULES
     Route: 048
  2. ZENPEP [Suspect]
     Active Substance: PANCRELIPASE AMYLASE\PANCRELIPASE LIPASE\PANCRELIPASE PROTEASE
     Dosage: 40 000 USP UNITS, ONCE, LAST DOSE PRIOR EVENT
     Route: 048

REACTIONS (5)
  - Type 2 diabetes mellitus [Unknown]
  - Immunosuppression [Unknown]
  - Deafness [Unknown]
  - Liver transplant [Unknown]
  - Hypertension [Unknown]
